FAERS Safety Report 21920247 (Version 8)
Quarter: 2024Q3

REPORT INFORMATION
  Report Type: Report from Study
  Country: US (occurrence: US)
  Receive Date: 20230127
  Receipt Date: 20240731
  Transmission Date: 20241017
  Serious: Yes (Hospitalization, Other)
  Sender: TAKEDA
  Company Number: US-TAKEDA-2022TUS089572

PATIENT
  Sex: Female

DRUGS (26)
  1. TEDUGLUTIDE [Suspect]
     Active Substance: TEDUGLUTIDE
     Indication: Short-bowel syndrome
     Dosage: 0.3 MILLILITER, QD
     Route: 058
     Dates: start: 20221110
  2. TEDUGLUTIDE [Suspect]
     Active Substance: TEDUGLUTIDE
     Indication: Short-bowel syndrome
     Dosage: 0.3 MILLILITER, QD
     Route: 058
     Dates: start: 20221110
  3. TEDUGLUTIDE [Suspect]
     Active Substance: TEDUGLUTIDE
     Indication: Short-bowel syndrome
     Dosage: 0.3 MILLILITER, QD
     Route: 058
     Dates: start: 20221110
  4. TEDUGLUTIDE [Suspect]
     Active Substance: TEDUGLUTIDE
     Indication: Short-bowel syndrome
     Dosage: 0.3 MILLILITER, QD
     Route: 058
     Dates: start: 20221110
  5. TEDUGLUTIDE [Suspect]
     Active Substance: TEDUGLUTIDE
     Indication: Phosphorus metabolism disorder
     Dosage: 0.3 MILLILITER, QD
     Route: 058
     Dates: start: 20221115
  6. TEDUGLUTIDE [Suspect]
     Active Substance: TEDUGLUTIDE
     Indication: Phosphorus metabolism disorder
     Dosage: 0.3 MILLILITER, QD
     Route: 058
     Dates: start: 20221115
  7. TEDUGLUTIDE [Suspect]
     Active Substance: TEDUGLUTIDE
     Indication: Phosphorus metabolism disorder
     Dosage: 0.3 MILLILITER, QD
     Route: 058
     Dates: start: 20221115
  8. TEDUGLUTIDE [Suspect]
     Active Substance: TEDUGLUTIDE
     Indication: Phosphorus metabolism disorder
     Dosage: 0.3 MILLILITER, QD
     Route: 058
     Dates: start: 20221115
  9. TEDUGLUTIDE [Suspect]
     Active Substance: TEDUGLUTIDE
     Indication: Abnormal loss of weight
     Dosage: 3 MILLIGRAM, QD
     Route: 058
     Dates: start: 202211
  10. TEDUGLUTIDE [Suspect]
     Active Substance: TEDUGLUTIDE
     Indication: Abnormal loss of weight
     Dosage: 3 MILLIGRAM, QD
     Route: 058
     Dates: start: 202211
  11. TEDUGLUTIDE [Suspect]
     Active Substance: TEDUGLUTIDE
     Indication: Abnormal loss of weight
     Dosage: 3 MILLIGRAM, QD
     Route: 058
     Dates: start: 202211
  12. TEDUGLUTIDE [Suspect]
     Active Substance: TEDUGLUTIDE
     Indication: Abnormal loss of weight
     Dosage: 3 MILLIGRAM, QD
     Route: 058
     Dates: start: 202211
  13. TEDUGLUTIDE [Suspect]
     Active Substance: TEDUGLUTIDE
     Dosage: 0.3 MILLILITER, QD
     Route: 058
  14. TEDUGLUTIDE [Suspect]
     Active Substance: TEDUGLUTIDE
     Dosage: 0.3 MILLILITER, QD
     Route: 058
  15. TEDUGLUTIDE [Suspect]
     Active Substance: TEDUGLUTIDE
     Dosage: 0.3 MILLILITER, QD
     Route: 058
  16. TEDUGLUTIDE [Suspect]
     Active Substance: TEDUGLUTIDE
     Dosage: 0.3 MILLILITER, QD
     Route: 058
  17. TEDUGLUTIDE [Suspect]
     Active Substance: TEDUGLUTIDE
     Dosage: 3 MILLIGRAM, QD
     Route: 058
  18. TEDUGLUTIDE [Suspect]
     Active Substance: TEDUGLUTIDE
     Dosage: 3 MILLIGRAM, QD
     Route: 058
  19. TEDUGLUTIDE [Suspect]
     Active Substance: TEDUGLUTIDE
     Dosage: 3 MILLIGRAM, QD
     Route: 058
  20. TEDUGLUTIDE [Suspect]
     Active Substance: TEDUGLUTIDE
     Dosage: 3 MILLIGRAM, QD
     Route: 058
  21. TEDUGLUTIDE [Suspect]
     Active Substance: TEDUGLUTIDE
     Dosage: 0.3 MILLILITER, QD
     Route: 058
  22. TEDUGLUTIDE [Suspect]
     Active Substance: TEDUGLUTIDE
     Dosage: 0.3 MILLILITER, QD
     Route: 058
  23. TEDUGLUTIDE [Suspect]
     Active Substance: TEDUGLUTIDE
     Dosage: 0.3 MILLILITER, QD
     Route: 058
  24. TEDUGLUTIDE [Suspect]
     Active Substance: TEDUGLUTIDE
     Dosage: 0.3 MILLILITER, QD
     Route: 058
  25. LEVAQUIN [Concomitant]
     Active Substance: LEVOFLOXACIN
     Dosage: UNK
     Route: 065
  26. GAS-X [Concomitant]
     Active Substance: DIMETHICONE
     Dosage: UNK
     Route: 065

REACTIONS (28)
  - Pneumonia [Unknown]
  - Pneumonia bacterial [Unknown]
  - Phosphorus metabolism disorder [Unknown]
  - Back pain [Unknown]
  - Incisional hernia [Unknown]
  - Stoma obstruction [Unknown]
  - Abnormal loss of weight [Unknown]
  - Foot fracture [Unknown]
  - Injection site bruising [Unknown]
  - Asthenia [Unknown]
  - Blood iron decreased [Unknown]
  - Transferrin saturation decreased [Unknown]
  - Sensation of foreign body [Unknown]
  - Fungal infection [Unknown]
  - Osteoporosis [Unknown]
  - Stoma site infection [Unknown]
  - Chills [Unknown]
  - Malaise [Unknown]
  - Weight decreased [Unknown]
  - Fall [Unknown]
  - White blood cell count increased [Unknown]
  - Blood phosphorus increased [Unknown]
  - Blood urea increased [Unknown]
  - Influenza [Unknown]
  - Nausea [Not Recovered/Not Resolved]
  - Flatulence [Unknown]
  - Decreased appetite [Unknown]
  - Vomiting [Unknown]
